FAERS Safety Report 16719298 (Version 2)
Quarter: 2019Q3

REPORT INFORMATION
  Report Type: Report from Study
  Country: US (occurrence: US)
  Receive Date: 20190820
  Receipt Date: 20190917
  Transmission Date: 20191005
  Serious: Yes (Other)
  Sender: FDA-Public Use
  Company Number: US-JNJFOC-20190818586

PATIENT
  Age: 45 Year
  Sex: Male

DRUGS (21)
  1. FOLIC ACID. [Concomitant]
     Active Substance: FOLIC ACID
  2. ZOFRAN [Concomitant]
     Active Substance: ONDANSETRON HYDROCHLORIDE
  3. OXYCODONE [Concomitant]
     Active Substance: OXYCODONE
  4. CYMBALTA [Concomitant]
     Active Substance: DULOXETINE HYDROCHLORIDE
  5. ALLOPURINOL. [Concomitant]
     Active Substance: ALLOPURINOL
  6. FAMOTIDINE. [Concomitant]
     Active Substance: FAMOTIDINE
  7. MORPHINE [Concomitant]
     Active Substance: MORPHINE
  8. CLONIDINE. [Concomitant]
     Active Substance: CLONIDINE
  9. OMEPRAZOLE. [Concomitant]
     Active Substance: OMEPRAZOLE
  10. MS CONTIN [Concomitant]
     Active Substance: MORPHINE SULFATE
  11. DIFICID [Concomitant]
     Active Substance: FIDAXOMICIN
  12. TERAZOSIN [Concomitant]
     Active Substance: TERAZOSIN HYDROCHLORIDE
  13. PREDNISONE. [Concomitant]
     Active Substance: PREDNISONE
  14. LIDOCAINE. [Concomitant]
     Active Substance: LIDOCAINE
  15. LAMIVUDINE. [Concomitant]
     Active Substance: LAMIVUDINE
  16. AUGMENTIN [Concomitant]
     Active Substance: AMOXICILLIN\CLAVULANATE POTASSIUM
  17. SUCRALFATE. [Concomitant]
     Active Substance: SUCRALFATE
  18. IMBRUVICA [Suspect]
     Active Substance: IBRUTINIB
     Indication: NON-HODGKIN^S LYMPHOMA
     Dosage: 420 MG, QD
     Route: 048
     Dates: start: 20190730
  19. RISPERDAL [Concomitant]
     Active Substance: RISPERIDONE
  20. PROCHLORPERAZINE. [Concomitant]
     Active Substance: PROCHLORPERAZINE
  21. MIRTAZAPINE. [Concomitant]
     Active Substance: MIRTAZAPINE

REACTIONS (2)
  - Clostridium difficile infection [Unknown]
  - Pleural effusion [Recovering/Resolving]

NARRATIVE: CASE EVENT DATE: 201907
